FAERS Safety Report 8758497 (Version 2)
Quarter: 2012Q4

REPORT INFORMATION
  Report Type: 
  Country: US (occurrence: US)
  Receive Date: 20120829
  Receipt Date: 20120914
  Transmission Date: 20130627
  Serious: Yes (Death)
  Sender: FDA-Public Use
  Company Number: PHEH2012US016810

PATIENT
  Age: 84 Year
  Sex: Male

DRUGS (1)
  1. TOBI [Suspect]
     Indication: INFECTIVE EXACERBATION OF BRONCHIECTASIS
     Dosage: 2 DF,

REACTIONS (1)
  - Death [Fatal]
